FAERS Safety Report 5214035-2 (Version None)
Quarter: 2007Q1

REPORT INFORMATION
  Report Type: 
  Country: None (occurrence: None)
  Receive Date: 20070122
  Receipt Date: 20070116
  Transmission Date: 20070707
  Serious: Yes (Hospitalization, Other)
  Sender: FDA-Public Use
  Company Number: US-ELI_LILLY_AND_COMPANY-US200609003735

PATIENT
  Age: 55 Year
  Sex: Female
  Weight: 102.04 kg

DRUGS (3)
  1. ZYPREXA [Suspect]
     Indication: MENTAL DISORDER
     Dosage: 10 MG, UNK
     Dates: start: 19950101, end: 20020101
  2. ARIPIPRAZOLE [Concomitant]
     Dates: start: 20050101
  3. QUETIAPINE FUMARATE [Concomitant]
     Dates: start: 20040101

REACTIONS (2)
  - PANCREATITIS [None]
  - VASCULAR BYPASS GRAFT [None]
